FAERS Safety Report 22252518 (Version 1)
Quarter: 2023Q2

REPORT INFORMATION
  Report Type: Other
  Country: CA (occurrence: CA)
  Receive Date: 20230426
  Receipt Date: 20230426
  Transmission Date: 20230722
  Serious: Yes (Other)
  Sender: FDA-Public Use
  Company Number: CA-GLENMARK PHARMACEUTICALS-2023GMK081110

PATIENT

DRUGS (1)
  1. DROSPIRENONE\ETHINYL ESTRADIOL [Suspect]
     Active Substance: DROSPIRENONE\ETHINYL ESTRADIOL
     Indication: Product used for unknown indication
     Dosage: UNK
     Route: 048

REACTIONS (9)
  - Arthralgia [Unknown]
  - Tracheobronchitis [Unknown]
  - Joint swelling [Unknown]
  - Pruritus [Unknown]
  - Thrombophlebitis [Unknown]
  - Menometrorrhagia [Unknown]
  - Deep vein thrombosis [Unknown]
  - Pain in extremity [Unknown]
  - Weight increased [Unknown]
